FAERS Safety Report 8125003-5 (Version None)
Quarter: 2012Q1

REPORT INFORMATION
  Report Type: 
  Country: None (occurrence: None)
  Receive Date: 20120209
  Receipt Date: 20120201
  Transmission Date: 20120608
  Serious: Yes (Death, Life-Threatening, Other)
  Sender: FDA-Public Use
  Company Number: JP-GENZYME-THYM-1002144

PATIENT
  Sex: Male
  Weight: 15 kg

DRUGS (97)
  1. TEPRENONE [Concomitant]
     Dosage: UNK
     Route: 065
     Dates: start: 20090520, end: 20090522
  2. AMBROXOL [Concomitant]
     Indication: PRODUCT USED FOR UNKNOWN INDICATION
     Dosage: 6 MG, BID
     Route: 065
     Dates: start: 20090512, end: 20090512
  3. URSODIOL [Concomitant]
     Indication: PROPHYLAXIS
     Dosage: 75 MG, BID
     Route: 065
     Dates: start: 20090513, end: 20090519
  4. HEPARIN [Concomitant]
     Indication: PRODUCT USED FOR UNKNOWN INDICATION
     Dosage: 25 MG, UNK
     Route: 065
     Dates: start: 20090514, end: 20090514
  5. CANDESARTAN CILEXETIL [Concomitant]
     Indication: PRODUCT USED FOR UNKNOWN INDICATION
     Dosage: 2 MG, QD
     Route: 065
     Dates: start: 20090520, end: 20090523
  6. TACROLIMUS [Concomitant]
     Dosage: 0.3 MG, BID
     Route: 065
     Dates: start: 20090627, end: 20090630
  7. DIFLUPREDNATE [Concomitant]
     Indication: PRODUCT USED FOR UNKNOWN INDICATION
     Dosage: 10 G, UNK
     Route: 065
     Dates: start: 20090608, end: 20090608
  8. ITRACONAZOLE [Concomitant]
     Indication: INFECTION PROPHYLAXIS
     Dosage: 7 ML, QD
     Route: 065
     Dates: start: 20090615, end: 20091215
  9. HEPARIN [Concomitant]
     Dosage: 2.25 ML, QD
     Dates: start: 20090512, end: 20090617
  10. HEPARIN [Concomitant]
     Dosage: 2.25 ML, QD
     Route: 065
     Dates: start: 20090512, end: 20090617
  11. PREDNISOLONE SODIUM SUCCINATE INJ [Concomitant]
     Indication: INFECTION PROPHYLAXIS
     Dosage: 2 MG, QD
     Route: 065
     Dates: start: 20090520, end: 20090520
  12. PREDNISOLONE SODIUM SUCCINATE INJ [Concomitant]
     Dosage: 2 MG, QD
     Route: 065
     Dates: start: 20090527, end: 20090602
  13. METHOTREXATE [Concomitant]
     Dosage: 6.5 MG, QD
     Route: 065
     Dates: start: 20090601, end: 20090601
  14. METOCLOPRAMIDE [Concomitant]
     Indication: PROPHYLAXIS AGAINST GRAFT VERSUS HOST DISEASE
     Dosage: 3 MG, QD
     Route: 065
     Dates: start: 20090523, end: 20090526
  15. PREDNISOLONE [Concomitant]
     Dosage: 8 MG, BID
     Route: 065
     Dates: start: 20090624, end: 20090625
  16. PREDNISOLONE [Concomitant]
     Dosage: 7 MG, BID
     Route: 065
     Dates: start: 20090630, end: 20090630
  17. CLARITHROMYCIN [Concomitant]
     Dosage: 100 MG, QD
     Route: 065
     Dates: start: 20090514, end: 20090517
  18. HEPARIN [Concomitant]
     Dosage: 10 ML, QD
     Route: 065
     Dates: start: 20090617, end: 20090617
  19. RAMOSETRON HYDROCHLORIDE [Concomitant]
     Dosage: 0.3 MG, QD
     Route: 065
     Dates: start: 20090520, end: 20090520
  20. RAMOSETRON HYDROCHLORIDE [Concomitant]
     Dosage: 60 MG, QD
     Route: 065
     Dates: start: 20090825
  21. PREDNISOLONE SODIUM SUCCINATE INJ [Concomitant]
     Dosage: 2 MG, QD
     Route: 065
     Dates: start: 20090609, end: 20090615
  22. PREDNISOLONE SODIUM SUCCINATE INJ [Concomitant]
     Dosage: UNK
     Route: 065
     Dates: start: 20090617, end: 20090617
  23. MICAFUNGIN SODIUM [Concomitant]
     Indication: INFECTION PROPHYLAXIS
     Dosage: 25 MG, QD
     Route: 065
     Dates: start: 20090521, end: 20090615
  24. METHOTREXATE [Concomitant]
     Dosage: 6.5 MG, QD
     Route: 065
     Dates: start: 20090527, end: 20090527
  25. MANGANESE CHLORIDE ZINC SULFATE COMBINED DRUG [Concomitant]
     Indication: PRODUCT USED FOR UNKNOWN INDICATION
     Dosage: 1 ML, QD
     Route: 065
     Dates: start: 20090524, end: 20090617
  26. LENOGRASTIM [Concomitant]
     Indication: COLONY STIMULATING FACTOR THERAPY
     Dosage: 100 MCG, QD
     Route: 065
     Dates: start: 20090526, end: 20090613
  27. PREDNISOLONE [Concomitant]
     Indication: PROPHYLAXIS AGAINST GRAFT VERSUS HOST DISEASE
     Dosage: 2 MG, BID
     Route: 065
     Dates: start: 20090511, end: 20090513
  28. PREDNISOLONE [Concomitant]
     Dosage: 9 MG, BID
     Route: 065
     Dates: start: 20090617, end: 20090630
  29. PREDNISOLONE [Concomitant]
     Dosage: 8 MG, BID
     Route: 065
     Dates: start: 20090627, end: 20090628
  30. PREDNISOLONE [Concomitant]
     Dosage: UNK
     Route: 065
     Dates: start: 20091124, end: 20091214
  31. TEPRENONE [Concomitant]
     Dosage: UNK
     Route: 065
     Dates: start: 20090516, end: 20090517
  32. MIDAZOLAM [Concomitant]
     Dosage: 10 MG, QD
     Route: 065
     Dates: start: 20090625, end: 20090625
  33. AMBROXOL [Concomitant]
     Dosage: 6 MG, BID
     Route: 065
     Dates: start: 20090523, end: 20090530
  34. CLARITHROMYCIN [Concomitant]
     Dosage: 200 MG, QD
     Route: 065
     Dates: start: 20090518, end: 20090522
  35. CLARITHROMYCIN [Concomitant]
     Dosage: 100 MG, QD
     Route: 065
     Dates: start: 20090523, end: 20090606
  36. URSODIOL [Concomitant]
     Dosage: 150 MG, BID
     Route: 065
     Dates: start: 20090520, end: 20090522
  37. CANDESARTAN CILEXETIL [Concomitant]
     Dosage: 6 MG, QD
     Route: 065
     Dates: start: 20090524, end: 20090526
  38. TACROLIMUS [Concomitant]
     Dosage: 0.4 MG, BID
     Route: 065
     Dates: start: 20090619, end: 20090624
  39. TACROLIMUS [Concomitant]
     Dosage: 0.4 MG, QD
     Route: 065
     Dates: start: 20090526, end: 20090615
  40. CEFAZOLIN [Concomitant]
     Indication: PRODUCT USED FOR UNKNOWN INDICATION
     Dosage: UNK
     Route: 065
     Dates: start: 20090512, end: 20090512
  41. PREDNISOLONE SODIUM SUCCINATE INJ [Concomitant]
     Dosage: 2.5 MG, QD
     Route: 065
     Dates: start: 20090524, end: 20090526
  42. PREDNISOLONE SODIUM SUCCINATE INJ [Concomitant]
     Dosage: 1.8 MG, QD
     Route: 065
     Dates: start: 20090616, end: 20090616
  43. FLOMOXEF SODIUM [Concomitant]
     Dosage: 1 G, QD
     Dates: start: 20090521, end: 20090606
  44. CLARITHROMYCIN [Concomitant]
     Dosage: 200 MG, QD
     Route: 065
     Dates: start: 20090513, end: 20090513
  45. SODIUM PICOSULFATE [Concomitant]
     Indication: PRODUCT USED FOR UNKNOWN INDICATION
     Dosage: 10 ML, UNK
     Route: 065
     Dates: start: 20090515, end: 20090515
  46. FLUOROMETHOLONE [Concomitant]
     Indication: PRODUCT USED FOR UNKNOWN INDICATION
     Dosage: UNK
     Route: 065
     Dates: start: 20090608, end: 20090608
  47. LIDOCAINE [Concomitant]
     Indication: PRODUCT USED FOR UNKNOWN INDICATION
     Dosage: 10 ML, QD
     Route: 065
     Dates: start: 20090511, end: 20090511
  48. LIDOCAINE [Concomitant]
     Dosage: 10 ML, QD
     Route: 065
     Dates: start: 20090625, end: 20090625
  49. HEPARIN [Concomitant]
     Dosage: 20 ML, QD
     Route: 065
     Dates: start: 20090625, end: 20090625
  50. FLUDARABINE PHOSPHATE [Concomitant]
     Indication: PRIMARY IMMUNODEFICIENCY SYNDROME
     Dosage: 20 MG, QD
     Route: 065
     Dates: start: 20090513, end: 20090518
  51. METHOTREXATE [Concomitant]
     Dosage: 6.5 MG, QD
     Route: 065
     Dates: start: 20090524, end: 20090524
  52. MEROPENEM [Concomitant]
     Dosage: 0.9 G, QD
     Route: 065
     Dates: start: 20090607, end: 20090611
  53. THYMOGLOBULIN [Suspect]
     Dosage: 40 MG, QD
     Route: 042
     Dates: start: 20090513, end: 20090514
  54. PREDNISOLONE [Concomitant]
     Dosage: 1.5 MG, BID
     Route: 065
     Dates: start: 20090520, end: 20090522
  55. PREDNISOLONE [Concomitant]
     Dosage: 7.5 MG, BID
     Route: 065
     Dates: start: 20090629, end: 20090629
  56. HEPARIN [Concomitant]
     Indication: PROPHYLAXIS
     Dosage: 10 ML, QD
     Route: 065
     Dates: start: 20090511, end: 20090511
  57. GRANISETRON HYDROCHLORIDE [Concomitant]
     Indication: PRODUCT USED FOR UNKNOWN INDICATION
     Dosage: 2 MG, QD
     Route: 065
     Dates: start: 20090513, end: 20090520
  58. METHYLPREDNISOLONE SODIUM SUCCINATE [Concomitant]
     Indication: PREMEDICATION
     Dosage: 15 MG, QD
     Route: 065
     Dates: start: 20090513, end: 20090515
  59. CHLORPHENIRAMINE MALEATE [Concomitant]
     Indication: PREMEDICATION
     Dosage: 2.5 MG, QD
     Route: 065
     Dates: start: 20090513, end: 20090515
  60. MESNA [Concomitant]
     Indication: PRODUCT USED FOR UNKNOWN INDICATION
     Dosage: 600 MG, QD
     Route: 065
     Dates: start: 20090515, end: 20090518
  61. PREDNISOLONE SODIUM SUCCINATE INJ [Concomitant]
     Dosage: 1.5 MG, QD
     Route: 065
     Dates: start: 20090603, end: 20090607
  62. AMBROXOL [Concomitant]
     Dosage: 12 MG, BID
     Route: 065
     Dates: start: 20090513, end: 20090513
  63. URSODIOL [Concomitant]
     Dosage: 75 MG, BID
     Route: 065
     Dates: start: 20090523, end: 20090623
  64. CANDESARTAN CILEXETIL [Concomitant]
     Dosage: 2 MG, QD
     Route: 065
     Dates: start: 20090527, end: 20090530
  65. TACROLIMUS [Concomitant]
     Indication: PROPHYLAXIS AGAINST GRAFT VERSUS HOST DISEASE
     Dosage: 10 G, UNK
     Route: 065
     Dates: start: 20090608, end: 20090608
  66. TACROLIMUS [Concomitant]
     Dosage: 0.3 MG, QD
     Route: 065
     Dates: start: 20090520, end: 20090521
  67. TACROLIMUS [Concomitant]
     Dosage: 0.6 MG, QD
     Route: 065
     Dates: start: 20090522, end: 20090525
  68. HEPARIN [Concomitant]
     Dosage: 10 ML, QD
     Route: 065
     Dates: start: 20090622, end: 20090622
  69. HEPARIN [Concomitant]
     Dosage: 10 ML, QD
     Route: 065
     Dates: start: 20090630, end: 20090630
  70. CYCLOPHOSPHAMIDE [Concomitant]
     Indication: PRODUCT USED FOR UNKNOWN INDICATION
     Dosage: 520 MG, QD
     Route: 065
     Dates: start: 20090515, end: 20090518
  71. RAMOSETRON HYDROCHLORIDE [Concomitant]
     Indication: PRODUCT USED FOR UNKNOWN INDICATION
     Dosage: 0.15 MG, QD
     Route: 065
     Dates: start: 20090518, end: 20090518
  72. PREDNISOLONE SODIUM SUCCINATE INJ [Concomitant]
     Dosage: 0.8 MG, QD
     Route: 065
     Dates: start: 20090616, end: 20090616
  73. METHOTREXATE [Concomitant]
     Indication: PROPHYLAXIS AGAINST GRAFT VERSUS HOST DISEASE
     Dosage: 10 MG, QD
     Route: 065
     Dates: start: 20090522, end: 20090522
  74. TEPRENONE [Concomitant]
     Indication: PRODUCT USED FOR UNKNOWN INDICATION
     Dosage: UNK
     Route: 065
     Dates: start: 20090511, end: 20090513
  75. MIDAZOLAM [Concomitant]
     Indication: PRODUCT USED FOR UNKNOWN INDICATION
     Dosage: 2 ML, QD
     Route: 065
     Dates: start: 20090511, end: 20090511
  76. AMBROXOL [Concomitant]
     Dosage: 6 MG, BID
     Route: 065
     Dates: start: 20090514, end: 20090519
  77. AMBROXOL [Concomitant]
     Dosage: 12 MG, BID
     Route: 065
     Dates: start: 20090520, end: 20090522
  78. CLARITHROMYCIN [Concomitant]
     Indication: PRODUCT USED FOR UNKNOWN INDICATION
     Dosage: 100 MG, QD
     Route: 065
     Dates: start: 20090512, end: 20090512
  79. TACROLIMUS [Concomitant]
     Dosage: 0.3 MG, QD
     Route: 065
     Dates: start: 20090625, end: 20090625
  80. WHITE PETROLEUM [Concomitant]
     Indication: PRODUCT USED FOR UNKNOWN INDICATION
     Dosage: 50 G, UNK
     Route: 065
     Dates: start: 20090609, end: 20090609
  81. PREDNISOLONE VALEROACETATE [Concomitant]
     Indication: PRODUCT USED FOR UNKNOWN INDICATION
     Dosage: 10 G, UNK
     Route: 065
     Dates: start: 20090610, end: 20090610
  82. MELPHALAN HYDROCHLORIDE [Concomitant]
     Indication: PRODUCT USED FOR UNKNOWN INDICATION
     Dosage: 60 MG, QD
     Route: 065
     Dates: start: 20090519, end: 20090519
  83. HAPTOGLOBINS [Concomitant]
     Indication: PRODUCT USED FOR UNKNOWN INDICATION
     Dosage: UNK
     Route: 065
     Dates: start: 20090521, end: 20090521
  84. TOTAL BODY IRRADIATION [Concomitant]
     Indication: PRODUCT USED FOR UNKNOWN INDICATION
     Dosage: UNK
     Route: 065
     Dates: start: 20090519, end: 20090520
  85. PREDNISOLONE [Concomitant]
     Dosage: 2 MG, BID
     Route: 065
     Dates: start: 20090516, end: 20090517
  86. PREDNISOLONE [Concomitant]
     Dosage: 16 MG, BID
     Route: 065
     Dates: start: 20090626, end: 20090626
  87. MIDAZOLAM [Concomitant]
     Dosage: 2.5 MG, QD
     Route: 065
     Dates: start: 20090511, end: 20090511
  88. TACROLIMUS [Concomitant]
     Dosage: 0.6 MG, BID
     Route: 065
     Dates: start: 20090615, end: 20090618
  89. TACROLIMUS [Concomitant]
     Dosage: 0.6 MG, BID
     Route: 065
     Dates: start: 20090626, end: 20090626
  90. SULFAMETHOPRIM [Concomitant]
     Indication: PRODUCT USED FOR UNKNOWN INDICATION
     Dosage: 0.75 G, BID
     Route: 065
     Dates: start: 20090624, end: 20090625
  91. CYCLOPHOSPHAMIDE [Concomitant]
     Dosage: 20 MG, QD
     Route: 065
     Dates: start: 20090515, end: 20090518
  92. PREDNISOLONE SODIUM SUCCINATE INJ [Concomitant]
     Dosage: 3 MG, QD
     Route: 065
     Dates: start: 20090521, end: 20090523
  93. PREDNISOLONE SODIUM SUCCINATE INJ [Concomitant]
     Dosage: 2.15 MG, QD
     Route: 065
     Dates: start: 20090608, end: 20090608
  94. FLOMOXEF SODIUM [Concomitant]
     Indication: PRODUCT USED FOR UNKNOWN INDICATION
     Dosage: 1.5 G, QD
     Route: 065
     Dates: start: 20090521, end: 20090605
  95. ACYCLOVIR [Concomitant]
     Indication: PROPHYLAXIS
     Dosage: 75 MG, BID
     Route: 065
     Dates: start: 20090522, end: 20090615
  96. MIXED AMINO ACID CARBOHYDRATE ELECTROLYTE VITAMIN COMBINED DRUG [Concomitant]
     Indication: PRODUCT USED FOR UNKNOWN INDICATION
     Dosage: 1103 ML, QD
     Route: 065
     Dates: start: 20090524, end: 20090617
  97. MEROPENEM [Concomitant]
     Indication: INFECTION PROPHYLAXIS
     Dosage: 0.6 G, QD
     Route: 065
     Dates: start: 20090606, end: 20090606

REACTIONS (4)
  - IDIOPATHIC THROMBOCYTOPENIC PURPURA [None]
  - HAEMOLYTIC ANAEMIA [None]
  - ACUTE GRAFT VERSUS HOST DISEASE [None]
  - CEREBRAL HAEMORRHAGE [None]
